FAERS Safety Report 19882359 (Version 2)
Quarter: 2021Q4

REPORT INFORMATION
  Report Type: Report from Study
  Country: US (occurrence: US)
  Receive Date: 20210925
  Receipt Date: 20211008
  Transmission Date: 20220304
  Serious: Yes (Hospitalization)
  Sender: FDA-Public Use
  Company Number: NVSC2021US214300

PATIENT
  Sex: Female

DRUGS (1)
  1. COSENTYX [Suspect]
     Active Substance: SECUKINUMAB
     Indication: Rheumatoid arthritis
     Dosage: 150 MG, QMO
     Route: 058
     Dates: start: 20210430

REACTIONS (4)
  - Infection [Recovered/Resolved]
  - Sepsis [Recovered/Resolved]
  - Disorientation [Recovered/Resolved]
  - Product use in unapproved indication [Unknown]
